FAERS Safety Report 25586954 (Version 1)
Quarter: 2025Q3

REPORT INFORMATION
  Report Type: Spontaneous
  Country: US (occurrence: US)
  Receive Date: 20250721
  Receipt Date: 20250721
  Transmission Date: 20251020
  Serious: No
  Sender: Phathom Pharmaceuticals
  Company Number: US-PHATHOM PHARMACEUTICALS INC.-2025PHT01421

PATIENT
  Age: 82 Year
  Sex: Female

DRUGS (8)
  1. VOQUEZNA [Suspect]
     Active Substance: VONOPRAZAN FUMARATE
     Indication: Gastrooesophageal reflux disease
     Dosage: 20 MG, 1X/DAY
     Route: 048
     Dates: start: 20250530, end: 20250606
  2. ASPIRIN [Concomitant]
     Active Substance: ASPIRIN
  3. CYANOCOBALAMIN [Concomitant]
     Active Substance: CYANOCOBALAMIN
  4. VITAMIN D3 [Concomitant]
     Active Substance: CHOLECALCIFEROL
  5. BIOTIN [Concomitant]
     Active Substance: BIOTIN
  6. LOSARTAN [Concomitant]
     Active Substance: LOSARTAN
  7. CARBIDOPA [Concomitant]
     Active Substance: CARBIDOPA
  8. LEVODOPA [Concomitant]
     Active Substance: LEVODOPA

REACTIONS (11)
  - Hypophagia [Unknown]
  - Weight decreased [Recovering/Resolving]
  - Hot flush [Recovering/Resolving]
  - Dysgeusia [Recovering/Resolving]
  - Euphoric mood [Recovering/Resolving]
  - Pruritus [Recovering/Resolving]
  - Feeling abnormal [Unknown]
  - Decreased appetite [Recovering/Resolving]
  - Rhinorrhoea [Unknown]
  - Constipation [Recovering/Resolving]
  - Insomnia [Unknown]

NARRATIVE: CASE EVENT DATE: 20250101
